FAERS Safety Report 6264547-8 (Version None)
Quarter: 2009Q3

REPORT INFORMATION
  Report Type: 
  Country: None (occurrence: None)
  Receive Date: 20090709
  Receipt Date: 20090624
  Transmission Date: 20100115
  Serious: Yes (Disabling, Other)
  Sender: FDA-Public Use
  Company Number: POMP-1000643

PATIENT
  Age: 28 Year
  Sex: Female

DRUGS (1)
  1. MYOZYME [Suspect]
     Indication: DRUG USE FOR UNKNOWN INDICATION
     Dosage: INTRAVENOUS
     Route: 042
     Dates: start: 20090622

REACTIONS (2)
  - DYSSTASIA [None]
  - VERTIGO [None]
